FAERS Safety Report 21143668 (Version 5)
Quarter: 2024Q3

REPORT INFORMATION
  Report Type: Spontaneous
  Country: CA (occurrence: CA)
  Receive Date: 20220728
  Receipt Date: 20240705
  Transmission Date: 20241017
  Serious: Yes (Other)
  Sender: PFIZER
  Company Number: CA-PFIZER INC-202200828033

PATIENT
  Age: 73 Year
  Sex: Male
  Weight: 94 kg

DRUGS (17)
  1. RUXIENCE [Suspect]
     Active Substance: RITUXIMAB-PVVR
     Indication: Rheumatoid arthritis
     Dosage: 1000 MG, DAY 1 AND DAY 15
     Route: 042
  2. RUXIENCE [Suspect]
     Active Substance: RITUXIMAB-PVVR
     Dosage: 1000 MG, DAY 1 AND DAY 15
     Route: 042
     Dates: start: 20220707
  3. RUXIENCE [Suspect]
     Active Substance: RITUXIMAB-PVVR
     Dosage: 1000 MG, DAY 1 AND DAY 15
     Route: 042
     Dates: start: 20220722
  4. RUXIENCE [Suspect]
     Active Substance: RITUXIMAB-PVVR
     Dosage: 1000 MG, DAY 1 AND DAY 15 (46 WEEKS (RE-TREATMENT))
     Route: 042
     Dates: start: 20230613
  5. RUXIENCE [Suspect]
     Active Substance: RITUXIMAB-PVVR
     Dosage: 1000 MG, DAY 1 AND DAY 15 (46 WEEKS (RE-TREATMENT))
     Route: 042
     Dates: start: 20230627
  6. RUXIENCE [Suspect]
     Active Substance: RITUXIMAB-PVVR
     Dosage: 1000 MG, DAY 1 AND DAY 15 (AFTER 25 WEEKS AND 2 DAYS (DAY 1))
     Route: 042
     Dates: start: 20231221
  7. RUXIENCE [Suspect]
     Active Substance: RITUXIMAB-PVVR
     Dosage: 1000 MG, DAY 1 AND DAY 15 (AFTER 25 WEEKS AND 2 DAYS (DAY 1))
     Route: 042
     Dates: start: 20231221
  8. RUXIENCE [Suspect]
     Active Substance: RITUXIMAB-PVVR
     Dosage: 1000 MG, DAY 1 AND 15 (1000MG AFTER 2 WEEKS AND 1 DAY)
     Route: 042
     Dates: start: 20240105
  9. RUXIENCE [Suspect]
     Active Substance: RITUXIMAB-PVVR
     Dosage: UNK
  10. RUXIENCE [Suspect]
     Active Substance: RITUXIMAB-PVVR
     Dosage: 1000 MG, DAY 1 AND 15
     Route: 042
     Dates: start: 20240617
  11. RUXIENCE [Suspect]
     Active Substance: RITUXIMAB-PVVR
     Dosage: 1000 MG,AFTER 2 WEEKS AND 1 DAY (DAY 1 AND 15)
     Route: 042
     Dates: start: 20240702
  12. ACETAMINOPHEN [Concomitant]
     Active Substance: ACETAMINOPHEN
     Indication: Premedication
     Dosage: UNK
     Dates: start: 20230613, end: 20230613
  13. ACETAMINOPHEN [Concomitant]
     Active Substance: ACETAMINOPHEN
     Dosage: UNK
     Dates: start: 20240105, end: 20240105
  14. DIPHENHYDRAMINE [Concomitant]
     Active Substance: DIPHENHYDRAMINE
     Indication: Premedication
     Dosage: UNK
     Dates: start: 20230613, end: 20230613
  15. DIPHENHYDRAMINE [Concomitant]
     Active Substance: DIPHENHYDRAMINE
     Dosage: UNK
     Dates: start: 20240105, end: 20240105
  16. METHYLPREDNISOLONE [Concomitant]
     Active Substance: METHYLPREDNISOLONE
     Indication: Premedication
     Dosage: UNK
     Dates: start: 20240105, end: 20240105
  17. SOLU-MEDROL [Concomitant]
     Active Substance: METHYLPREDNISOLONE SODIUM SUCCINATE
     Indication: Premedication
     Dosage: UNK
     Dates: start: 20230613, end: 20230613

REACTIONS (10)
  - Bradycardia [Unknown]
  - Blood pressure increased [Not Recovered/Not Resolved]
  - Heart rate irregular [Unknown]
  - Blood pressure fluctuation [Not Recovered/Not Resolved]
  - Weight decreased [Unknown]
  - Pruritus [Recovered/Resolved]
  - Condition aggravated [Not Recovered/Not Resolved]
  - Hypertension [Unknown]
  - Off label use [Unknown]
  - Intentional product use issue [Unknown]

NARRATIVE: CASE EVENT DATE: 20220707
